FAERS Safety Report 5052988-6 (Version None)
Quarter: 2006Q3

REPORT INFORMATION
  Report Type: 
  Country: None (occurrence: None)
  Receive Date: 20060712
  Receipt Date: 20060628
  Transmission Date: 20061208
  Serious: Yes (Other)
  Sender: FDA-Public Use
  Company Number: 2006082248

PATIENT
  Age: 50 Year
  Sex: Male
  Weight: 73.0291 kg

DRUGS (1)
  1. BEXTRA [Suspect]
     Indication: ARTHRITIS
     Dosage: 20 MG (20 MG, 1 IN 1 D)
     Dates: start: 20020101

REACTIONS (4)
  - PAIN OF SKIN [None]
  - RASH PRURITIC [None]
  - SCAR [None]
  - SKIN BURNING SENSATION [None]
